FAERS Safety Report 11832723 (Version 2)
Quarter: 2015Q4

REPORT INFORMATION
  Report Type: Spontaneous
  Country: JP (occurrence: JP)
  Receive Date: 20151214
  Receipt Date: 20151229
  Transmission Date: 20160305
  Serious: Yes (Other)
  Sender: FDA-Public Use
  Company Number: JP-GLAXOSMITHKLINE-JP2015JPN175731

PATIENT
  Age: 12 Year
  Sex: Male
  Weight: 31.7 kg

DRUGS (18)
  1. FLUTIDE [Suspect]
     Active Substance: FLUTICASONE PROPIONATE
     Indication: ASTHMA
     Dosage: 200 UG, 1D
     Route: 055
     Dates: start: 20110725
  2. SERETIDE [Suspect]
     Active Substance: FLUTICASONE FUROATE\SALMETEROL XINAFOATE
     Indication: ASTHMA
     Dosage: 500 ?G, 1D
     Route: 055
     Dates: start: 20111027
  3. SERETIDE [Suspect]
     Active Substance: FLUTICASONE FUROATE\SALMETEROL XINAFOATE
     Dosage: 200 ?G, 1D
     Route: 055
     Dates: start: 20140809
  4. SERETIDE [Suspect]
     Active Substance: FLUTICASONE FUROATE\SALMETEROL XINAFOATE
     Dosage: 100 ?G, 1D
     Route: 055
     Dates: start: 20150704
  5. FLUTIDE [Suspect]
     Active Substance: FLUTICASONE PROPIONATE
     Dosage: 400 ?G, 1D
     Route: 055
     Dates: start: 20111006
  6. FLUTIDE [Suspect]
     Active Substance: FLUTICASONE PROPIONATE
     Dosage: 200 ?G, 1D
     Route: 055
     Dates: start: 20121226, end: 20130118
  7. SERETIDE [Suspect]
     Active Substance: FLUTICASONE FUROATE\SALMETEROL XINAFOATE
     Dosage: 150 ?G, 1D
     Route: 055
     Dates: start: 20130921, end: 20131227
  8. THEO-DUR [Concomitant]
     Active Substance: THEOPHYLLINE ANHYDROUS
     Dosage: UNK
  9. SERETIDE [Suspect]
     Active Substance: FLUTICASONE FUROATE\SALMETEROL XINAFOATE
     Dosage: 125 ?G, 1D
     Route: 055
     Dates: start: 20121013
  10. SERETIDE [Suspect]
     Active Substance: FLUTICASONE FUROATE\SALMETEROL XINAFOATE
     Dosage: 200 ?G, 1D
     Route: 055
     Dates: start: 20130119, end: 20130920
  11. SERETIDE [Suspect]
     Active Substance: FLUTICASONE FUROATE\SALMETEROL XINAFOATE
     Dosage: 150 ?G, 1D
     Route: 055
     Dates: start: 20150404, end: 20150703
  12. SINGULAIR [Concomitant]
     Active Substance: MONTELUKAST SODIUM
     Dosage: UNK
  13. SERETIDE [Suspect]
     Active Substance: FLUTICASONE FUROATE\SALMETEROL XINAFOATE
     Dosage: 375 ?G, 1D
     Route: 055
     Dates: start: 20120726, end: 20120810
  14. SERETIDE [Suspect]
     Active Substance: FLUTICASONE FUROATE\SALMETEROL XINAFOATE
     Dosage: 250 ?G, 1D
     Route: 055
     Dates: start: 20120811, end: 20121012
  15. SERETIDE [Suspect]
     Active Substance: FLUTICASONE FUROATE\SALMETEROL XINAFOATE
     Dosage: 100 ?G, 1D
     Route: 055
     Dates: start: 20131228, end: 20140808
  16. FLUTIDE [Suspect]
     Active Substance: FLUTICASONE PROPIONATE
     Dosage: 100 ?G, 1D
     Route: 055
     Dates: end: 20121225
  17. ALESION [Concomitant]
     Active Substance: EPINASTINE HYDROCHLORIDE
     Dosage: UNK
  18. SERETIDE [Suspect]
     Active Substance: FLUTICASONE FUROATE\SALMETEROL XINAFOATE
     Dosage: 500 ?G, 1D
     Route: 055
     Dates: start: 20120315, end: 20120725

REACTIONS (2)
  - Adrenal suppression [Not Recovered/Not Resolved]
  - Drug effect incomplete [Unknown]

NARRATIVE: CASE EVENT DATE: 20121226
